FAERS Safety Report 9331864 (Version 1)
Quarter: 2013Q2

REPORT INFORMATION
  Report Type: Spontaneous
  Country: AU (occurrence: AU)
  Receive Date: 20130605
  Receipt Date: 20130605
  Transmission Date: 20140414
  Serious: Yes (Hospitalization)
  Sender: FDA-Public Use
  Company Number: AU-ALEXION-A201301272

PATIENT
  Sex: Male

DRUGS (2)
  1. SOLIRIS 300MG [Suspect]
     Indication: PRODUCT USED FOR UNKNOWN INDICATION
     Dosage: 900 MG, UNK
     Route: 042
     Dates: start: 20110915
  2. PENICILLIN [Concomitant]
     Indication: ANTIBIOTIC THERAPY

REACTIONS (3)
  - Viral upper respiratory tract infection [Recovering/Resolving]
  - Haemoglobin decreased [Not Recovered/Not Resolved]
  - Haemolysis [Not Recovered/Not Resolved]
